FAERS Safety Report 23935940 (Version 1)
Quarter: 2024Q2

REPORT INFORMATION
  Report Type: Spontaneous
  Country: KR (occurrence: KR)
  Receive Date: 20240604
  Receipt Date: 20240604
  Transmission Date: 20240716
  Serious: Yes (Other)
  Sender: FDA-Public Use
  Company Number: KR-LEO Pharma-370772

PATIENT
  Sex: Female

DRUGS (1)
  1. PROTOPIC [Suspect]
     Active Substance: TACROLIMUS
     Indication: Vitiligo
     Dosage: PROTOPIC OINTMENT 0.1%

REACTIONS (4)
  - Inappropriate schedule of product administration [Unknown]
  - Thrombosis [Unknown]
  - Off label use [Unknown]
  - Solar lentigo [Unknown]
